FAERS Safety Report 7440448-4 (Version None)
Quarter: 2011Q2

REPORT INFORMATION
  Report Type: 
  Country: None (occurrence: None)
  Receive Date: 20110427
  Receipt Date: 20110418
  Transmission Date: 20111010
  Serious: Yes (Hospitalization, Other)
  Sender: FDA-Public Use
  Company Number: US-ABBOTT-11P-163-0714650-00

PATIENT
  Sex: Female

DRUGS (17)
  1. KLOR-CON [Concomitant]
     Indication: MINERAL SUPPLEMENTATION
     Dosage: 20 UNITS UNKNOWN, DAILY
  2. LYRICA [Concomitant]
     Indication: PRODUCT USED FOR UNKNOWN INDICATION
     Dosage: 50 MG TWICE DAILY
  3. ACTONEL [Concomitant]
     Indication: OSTEOARTHRITIS
     Dosage: 35 MG WEEKLY
  4. DOXYCYCLINE [Concomitant]
     Indication: PRODUCT USED FOR UNKNOWN INDICATION
     Dosage: 100 MG TWICE DAILY
  5. TRAMADOL [Concomitant]
     Indication: PRODUCT USED FOR UNKNOWN INDICATION
     Dosage: 37.5 MG PRN
  6. PREDNISONE [Concomitant]
     Indication: RHEUMATOID ARTHRITIS
     Dosage: 5 MG DAILY
  7. MULTI-VITAMIN [Concomitant]
     Indication: VITAMIN SUPPLEMENTATION
  8. CALCIUM W/VITAMIN D [Concomitant]
     Indication: MINERAL SUPPLEMENTATION
  9. AMBIEN [Concomitant]
     Indication: INSOMNIA
  10. HUMIRA [Suspect]
     Indication: RHEUMATOID ARTHRITIS
  11. ARAVA [Suspect]
     Indication: RHEUMATOID ARTHRITIS
     Dosage: 20 MILLIGRAMS DAILY
     Route: 048
     Dates: start: 20081212
  12. PEPCID [Concomitant]
     Indication: GASTRITIS
  13. XANAX [Concomitant]
     Indication: ANXIETY
     Dosage: .25MG PRN
  14. LEVOTHYROXINE SODIUM [Concomitant]
     Indication: HYPOTHYROIDISM
     Dosage: 25MCG DAILY
  15. CRESTOR [Concomitant]
     Indication: BLOOD CHOLESTEROL INCREASED
     Dosage: AT BEDTIME
  16. LASIX [Concomitant]
     Indication: HYPERTENSION
     Dosage: 20 MG DAILY
  17. CELEBREX [Concomitant]
     Indication: RHEUMATOID ARTHRITIS
     Dosage: 200 MG TWICE DAILY

REACTIONS (4)
  - DEAFNESS [None]
  - GRAND MAL CONVULSION [None]
  - POSTERIOR REVERSIBLE ENCEPHALOPATHY SYNDROME [None]
  - BLINDNESS [None]
